FAERS Safety Report 6191272-4 (Version None)
Quarter: 2009Q2

REPORT INFORMATION
  Report Type: 
  Country: None (occurrence: None)
  Receive Date: 20090513
  Receipt Date: 20090513
  Transmission Date: 20091009
  Serious: Yes (Disabling, Other)
  Sender: FDA-Public Use
  Company Number: None

PATIENT
  Sex: Female
  Weight: 61.2356 kg

DRUGS (2)
  1. LITHIUM CARBONATE [Suspect]
     Indication: HYPOMANIA
     Dosage: SAME AS USUAL 2 PER DAY ORAL
     Route: 048
     Dates: start: 20060101, end: 20080101
  2. LITHIUM CARBONATE [Suspect]
     Indication: HYPOMANIA
     Dosage: AVERAGE AMOUNT 2 PER DAY ORAL
     Route: 048

REACTIONS (2)
  - ACNE [None]
  - PAIN [None]
